FAERS Safety Report 9312990 (Version 1)
Quarter: 2013Q2

REPORT INFORMATION
  Report Type: Spontaneous
  Country: US (occurrence: US)
  Receive Date: 20130528
  Receipt Date: 20130528
  Transmission Date: 20140414
  Serious: No
  Sender: FDA-Public Use
  Company Number: US-ABBOTT-13P-163-1065698-00

PATIENT
  Age: 66 Year
  Sex: Male
  Weight: 113.5 kg

DRUGS (7)
  1. ANDROGEL [Suspect]
     Indication: BLOOD TESTOSTERONE DECREASED
     Dosage: 2 PUMPS
     Route: 061
     Dates: start: 2011
  2. ANDROGEL [Suspect]
     Dosage: 1 PUMP
     Route: 061
  3. ATORVASTATIN [Concomitant]
     Indication: BLOOD CHOLESTEROL INCREASED
     Dosage: UNKNOWN
  4. CITALOPRAM [Concomitant]
     Indication: DEPRESSION
     Dosage: UNKNOWN
  5. HYDROCORTISONE [Concomitant]
     Indication: PRODUCT USED FOR UNKNOWN INDICATION
     Dosage: UNKNOWN
  6. LEVOTHYROXINE [Concomitant]
     Indication: PRODUCT USED FOR UNKNOWN INDICATION
     Dosage: UNKNOWN
  7. LISINOPRIL [Concomitant]
     Indication: HYPERTENSION
     Dosage: UNKNOWN

REACTIONS (5)
  - Drug administered at inappropriate site [Recovered/Resolved]
  - Erythema [Recovering/Resolving]
  - Pruritus generalised [Recovering/Resolving]
  - Application site erythema [Not Recovered/Not Resolved]
  - Application site irritation [Not Recovered/Not Resolved]
